FAERS Safety Report 12590961 (Version 2)
Quarter: 2016Q3

REPORT INFORMATION
  Report Type: Spontaneous
  Country: US (occurrence: US)
  Receive Date: 20160726
  Receipt Date: 20160726
  Transmission Date: 20161109
  Serious: No
  Sender: FDA-Public Use
  Company Number: US-UNITED THERAPEUTICS-UNT-2015-015315

PATIENT
  Age: 66 Year
  Sex: Female
  Weight: 56.69 kg

DRUGS (1)
  1. REMODULIN [Suspect]
     Active Substance: TREPROSTINIL
     Indication: PULMONARY ARTERIAL HYPERTENSION
     Dosage: 0.140 ?G/KG, CONTINUING
     Route: 042
     Dates: start: 20130211

REACTIONS (12)
  - Diarrhoea [Recovered/Resolved]
  - Drug dose omission [Recovered/Resolved]
  - Thrombosis in device [Unknown]
  - Epistaxis [Recovered/Resolved]
  - Sinus pain [Unknown]
  - Nasopharyngitis [Unknown]
  - Head discomfort [Unknown]
  - Pain in jaw [Unknown]
  - Malaise [Unknown]
  - Chills [Not Recovered/Not Resolved]
  - Device leakage [Recovered/Resolved]
  - Nasal congestion [Unknown]

NARRATIVE: CASE EVENT DATE: 20151202
